FAERS Safety Report 19373123 (Version 1)
Quarter: 2021Q2

REPORT INFORMATION
  Report Type: Spontaneous
  Country: GB (occurrence: GB)
  Receive Date: 20210604
  Receipt Date: 20210604
  Transmission Date: 20210717
  Serious: Yes (Disabling)
  Sender: FDA-Public Use
  Company Number: GB-TILLOMEDPR-2021-EPL-001771

PATIENT
  Age: 56 Year
  Sex: Female
  Weight: 82 kg

DRUGS (12)
  1. AMOXICILLIN. [Concomitant]
     Active Substance: AMOXICILLIN
     Dosage: 1 DOSAGE FORM, 3 DOSE PER 1 D
     Dates: start: 20210514, end: 20210519
  2. CALCI?D [Concomitant]
     Active Substance: CALCIUM CARBONATE\CHOLECALCIFEROL
     Dosage: 1 DOSAGE FORM, 1 DOSE PER 1 D
     Dates: start: 20210329
  3. COCODAMOL [Concomitant]
     Active Substance: ACETAMINOPHEN\CODEINE PHOSPHATE
     Dosage: TAKE ONE OR TWO, UP TO 4 TIMES A DAY
     Dates: start: 20210517
  4. RELVAR ELLIPTA [Concomitant]
     Active Substance: FLUTICASONE FUROATE\VILANTEROL TRIFENATATE
     Dosage: 1 DOSAGE FORM, 1 DOSE PER 1 D
     Route: 055
     Dates: start: 20200713
  5. ZOLEDRONIC ACID [Suspect]
     Active Substance: ZOLEDRONIC ACID
     Indication: PRODUCT USED FOR UNKNOWN INDICATION
     Dosage: 4MG/5ML HOSPITAL ONLY,VIALS
     Dates: start: 20201203
  6. VENTOLIN [Concomitant]
     Active Substance: ALBUTEROL SULFATE
     Dates: start: 20200713
  7. RAMIPRIL. [Concomitant]
     Active Substance: RAMIPRIL
     Dosage: 1 DOSAGE FORM, 1 DOSE PER 1 D
     Dates: start: 20200713
  8. FLUTICASONE FUROATE [Concomitant]
     Active Substance: FLUTICASONE FUROATE
     Dosage: USE IN EACH NOSTRIL
     Route: 045
     Dates: start: 20210330
  9. SAXENDA [Concomitant]
     Active Substance: LIRAGLUTIDE
     Dosage: BLACK LISTED IN A CITY, TRAFFIC LIGHT DRUG LI...
     Dates: start: 20210505
  10. AMLODIPINE [Concomitant]
     Active Substance: AMLODIPINE BESYLATE
     Dosage: 1 DOSAGE FORM, 1 DOSE PER 1 D
     Dates: start: 20200713
  11. INVITA?D3 [Concomitant]
     Dosage: TAKE ONCE WE...
     Dates: start: 20210318, end: 20210429
  12. PREDNISOLONE. [Concomitant]
     Active Substance: PREDNISOLONE
     Dosage: EVERY MORNING
     Dates: start: 20210514, end: 20210519

REACTIONS (4)
  - Polyarthritis [Recovering/Resolving]
  - Arthralgia [Unknown]
  - Joint warmth [Unknown]
  - Joint swelling [Unknown]
